FAERS Safety Report 7149532-6 (Version None)
Quarter: 2010Q4

REPORT INFORMATION
  Report Type: 
  Country: None (occurrence: None)
  Receive Date: 20101209
  Receipt Date: 20101130
  Transmission Date: 20110411
  Serious: Yes (Other)
  Sender: FDA-Public Use
  Company Number: US-AMGEN-KDL441868

PATIENT

DRUGS (8)
  1. PROCRIT [Suspect]
     Indication: PRODUCT USED FOR UNKNOWN INDICATION
     Dosage: 10000 IU, Q2WK
     Route: 058
     Dates: start: 20100913, end: 20100924
  2. AMLODIPINE BESYLATE [Concomitant]
     Dosage: 10 MG, UNK
     Route: 048
  3. FOLIC ACID/CYANOCOBALAMIN PYRIDOXINE [Concomitant]
     Dosage: 1 MG, UNK
     Route: 048
  4. FUROSEMIDE [Concomitant]
     Dosage: 20 MG, UNK
     Route: 048
  5. ASPIRIN [Concomitant]
     Dosage: 81 MG, UNK
     Route: 048
  6. CLOPIDOGREL BISULFATE [Concomitant]
     Dosage: 75 MG, UNK
     Route: 048
  7. CARVEDILOL [Concomitant]
     Dosage: UNK UNK, UNK
     Route: 048
  8. SIMVASTATIN [Concomitant]
     Dosage: 80 MG, UNK
     Route: 048

REACTIONS (2)
  - PNEUMONIA [None]
  - PULMONARY OEDEMA [None]
